FAERS Safety Report 6256391-2 (Version None)
Quarter: 2009Q3

REPORT INFORMATION
  Report Type: 
  Country: None (occurrence: None)
  Receive Date: 20090701
  Receipt Date: 20090701
  Transmission Date: 20100115
  Serious: No
  Sender: FDA-Public Use
  Company Number: None

PATIENT
  Age: 52 Year
  Sex: Male
  Weight: 72.5755 kg

DRUGS (1)
  1. CREST PRO-HEALTH MOUTHWASH [Suspect]
     Dosage: 3 OZ 2.DAY
     Dates: start: 20090514, end: 20090607

REACTIONS (1)
  - TOOTH DISCOLOURATION [None]
